FAERS Safety Report 9513951 (Version 6)
Quarter: 2016Q3

REPORT INFORMATION
  Report Type: Report from Study
  Country: JP (occurrence: JP)
  Receive Date: 20130910
  Receipt Date: 20160830
  Transmission Date: 20161109
  Serious: Yes (Life-Threatening)
  Sender: FDA-Public Use
  Company Number: JP-BRISTOL-MYERS SQUIBB COMPANY-19352897

PATIENT
  Age: 68 Year
  Sex: Male
  Weight: 57.9 kg

DRUGS (3)
  1. NOVORAPID [Concomitant]
     Active Substance: INSULIN ASPART
     Indication: PRODUCT USED FOR UNKNOWN INDICATION
     Dosage: 1 DF=24 UNITS  INJ
     Route: 058
  2. DASATINIB [Suspect]
     Active Substance: DASATINIB
     Indication: CHRONIC MYELOID LEUKAEMIA
     Dosage: FROM 08-AUG-2013 TO UNKNOWN DATE (23DAYS)
     Route: 048
     Dates: start: 20130808, end: 20130830
  3. LANTUS [Concomitant]
     Active Substance: INSULIN GLARGINE
     Indication: PRODUCT USED FOR UNKNOWN INDICATION
     Dosage: 1 DF=10 UNITS  INJ
     Route: 058

REACTIONS (6)
  - Stress cardiomyopathy [Recovered/Resolved]
  - Interstitial lung disease [Recovered/Resolved]
  - Hypertensive encephalopathy [Recovered/Resolved]
  - Cardiac failure [Recovered/Resolved]
  - Pleural effusion [Recovered/Resolved]
  - Pulmonary oedema [Recovered/Resolved]

NARRATIVE: CASE EVENT DATE: 20130830
